FAERS Safety Report 5284726-6 (Version None)
Quarter: 2007Q1

REPORT INFORMATION
  Report Type: 
  Country: None (occurrence: None)
  Receive Date: 20061229
  Receipt Date: 20060207
  Transmission Date: 20070707
  Serious: Yes (Other)
  Sender: FDA-Public Use
  Company Number: PHEH2006US01797

PATIENT
  Age: 27 Year
  Sex: Male

DRUGS (2)
  1. CLOZARIL [Suspect]
     Indication: SCHIZOAFFECTIVE DISORDER
     Dosage: 900 MG, QD, ORAL; 450 MG, QD, ORAL
     Route: 048
     Dates: end: 20060202
  2. CLOZARIL [Suspect]
     Indication: SCHIZOAFFECTIVE DISORDER
     Dosage: 900 MG, QD, ORAL; 450 MG, QD, ORAL
     Route: 048
     Dates: start: 20060203

REACTIONS (1)
  - CONVULSION [None]
